FAERS Safety Report 15194712 (Version 2)
Quarter: 2018Q4

REPORT INFORMATION
  Report Type: Spontaneous
  Country: JP (occurrence: JP)
  Receive Date: 20180725
  Receipt Date: 20181004
  Transmission Date: 20190204
  Serious: No
  Sender: FDA-Public Use
  Company Number: JP-GLAXOSMITHKLINE-JP2018JPN124108

PATIENT
  Age: 51 Year
  Sex: Female

DRUGS (9)
  1. TAVEGIL [Suspect]
     Active Substance: CLEMASTINE FUMARATE
     Dosage: 1 MG, BID
     Route: 048
  2. FAMOTIDINE OD [Concomitant]
     Active Substance: FAMOTIDINE
     Indication: GASTROOESOPHAGEAL REFLUX DISEASE
     Dosage: 20 MG, BID
     Dates: start: 20180823
  3. CLEMASTINE [Concomitant]
     Active Substance: CLEMASTINE
     Dosage: 1 MG, BID
     Dates: start: 20180819
  4. AZELASTINE HYDROCHLORIDE. [Concomitant]
     Active Substance: AZELASTINE HYDROCHLORIDE
     Dosage: 1 MG, BID
  5. MOSAPRIDE CITRATE TABLETS [Suspect]
     Active Substance: MOSAPRIDE CITRATE
     Indication: GASTROOESOPHAGEAL REFLUX DISEASE
     Dosage: 5 MG, QD
     Route: 048
     Dates: start: 20160529, end: 20180822
  6. RABEPRAZOLE SODIUM. [Concomitant]
     Active Substance: RABEPRAZOLE SODIUM
     Indication: GASTROOESOPHAGEAL REFLUX DISEASE
     Dosage: 10 MG, QD
     Dates: start: 20160529, end: 20180822
  7. LOXIPRONAL [Concomitant]
     Dosage: 60 MG, TID
     Dates: start: 20160529, end: 20180822
  8. REBAMIPIDE [Concomitant]
     Active Substance: REBAMIPIDE
     Indication: GASTROOESOPHAGEAL REFLUX DISEASE
     Dosage: 100 MG, QD
     Dates: start: 20160529, end: 20180822
  9. GOSHAJINKIGAN [Suspect]
     Active Substance: HERBALS
     Dosage: 2.5 G, TID
     Route: 048
     Dates: start: 20160529, end: 20180822

REACTIONS (4)
  - Blood creatine phosphokinase increased [Unknown]
  - Blood lactate dehydrogenase increased [Unknown]
  - Lymphadenopathy [Unknown]
  - Amylase increased [Unknown]

NARRATIVE: CASE EVENT DATE: 20180529
